FAERS Safety Report 12250741 (Version 1)
Quarter: 2016Q2

REPORT INFORMATION
  Report Type: Spontaneous
  Country: US (occurrence: US)
  Receive Date: 20160410
  Receipt Date: 20160410
  Transmission Date: 20160815
  Serious: No
  Sender: FDA-Public Use
  Company Number: US-JNJFOC-20160222048

PATIENT
  Age: 94 Year
  Sex: Female
  Weight: 61.24 kg

DRUGS (2)
  1. ZYRTEC [Suspect]
     Active Substance: CETIRIZINE HYDROCHLORIDE
     Indication: NASOPHARYNGITIS
     Dosage: 1/2 TAB TWICE A DAY
     Route: 048
  2. ZYRTEC [Suspect]
     Active Substance: CETIRIZINE HYDROCHLORIDE
     Indication: RHINORRHOEA
     Dosage: 1/2 TAB TWICE A DAY
     Route: 048

REACTIONS (4)
  - Off label use [Unknown]
  - Wrong patient received medication [Unknown]
  - Product use issue [Unknown]
  - Therapeutic response unexpected [Unknown]
